FAERS Safety Report 4507571-5 (Version None)
Quarter: 2004Q4

REPORT INFORMATION
  Report Type: 
  Country: None (occurrence: None)
  Receive Date: 20040928
  Receipt Date: 20040721
  Transmission Date: 20050328
  Serious: Yes (Hospitalization)
  Sender: FDA-Public Use
  Company Number: 04P-163-0267754-00

PATIENT
  Age: 67 Year
  Sex: Female
  Weight: 62.1428 kg

DRUGS (4)
  1. HUMIRA [Suspect]
     Indication: RHEUMATOID ARTHRITIS
     Dosage: 40 MG, 1 IN 2 WK, SUBCUTANEOUS
     Route: 058
     Dates: start: 20030801
  2. ALENDRONATE SODIUM [Concomitant]
  3. METHOTREXATE [Concomitant]
  4. NAPROXEN [Concomitant]

REACTIONS (5)
  - FATIGUE [None]
  - HEADACHE [None]
  - NAUSEA [None]
  - URINARY TRACT INFECTION [None]
  - VOMITING [None]
